FAERS Safety Report 16990479 (Version 1)
Quarter: 2019Q4

REPORT INFORMATION
  Report Type: Spontaneous
  Country: GB (occurrence: GB)
  Receive Date: 20191104
  Receipt Date: 20191104
  Transmission Date: 20200122
  Serious: Yes (Other)
  Sender: FDA-Public Use
  Company Number: GB-MYLANLABS-2019M1104123

PATIENT
  Age: 88 Year
  Sex: Male
  Weight: 73 kg

DRUGS (20)
  1. SALBUTAMOL [Concomitant]
     Active Substance: ALBUTEROL
     Dosage: ONE TWO PUFFS UP TO FOUR TIMES DAY
     Route: 055
     Dates: start: 20160915
  2. BISOPROLOL [Concomitant]
     Active Substance: BISOPROLOL
     Dosage: 1 DOSAGE FORM, QD
     Dates: start: 20170105
  3. SPIRONOLACTONE. [Concomitant]
     Active Substance: SPIRONOLACTONE
     Dosage: 0.5 DOSAGE FORM, QD
     Dates: start: 20170831, end: 20171212
  4. INFLUENZA VIRUS [Concomitant]
     Active Substance: INFLUENZA VIRUS VACCINE
     Dosage: UNK
     Dates: start: 20171009, end: 20171009
  5. AMILORIDE HYDROCHLORIDE. [Concomitant]
     Active Substance: AMILORIDE HYDROCHLORIDE
     Dosage: EACH MORNING
     Dates: start: 20170908, end: 20170926
  6. GLYCERYL TRINITRATE [Concomitant]
     Active Substance: NITROGLYCERIN
     Dosage: ONE TO TWO DOSES UNDER THE TONGUE
     Route: 060
     Dates: start: 20170207
  7. ISOSORBIDE MONONITRATE. [Concomitant]
     Active Substance: ISOSORBIDE MONONITRATE
     Dosage: ONE TABLET IN THE MORNING
     Dates: start: 20170502
  8. LANSOPRAZOLE. [Concomitant]
     Active Substance: LANSOPRAZOLE
     Indication: DYSPEPSIA
     Dosage: TO HELP PREVENT INDIG
     Dates: start: 20170728
  9. CLOPIDOGREL [Concomitant]
     Active Substance: CLOPIDOGREL BISULFATE
     Dosage: 1 DOSAGE FORM, QD
     Dates: start: 20170207
  10. PARACETAMOL [Concomitant]
     Active Substance: ACETAMINOPHEN
     Dosage: ONE TWO TABLETS UP TO FOUR TIMES DAY
     Dates: start: 20170111
  11. DOCUSATE SODIUM. [Concomitant]
     Active Substance: DOCUSATE SODIUM
     Indication: CONSTIPATION
     Dosage: EACH MORNING
     Dates: start: 20171018, end: 20171115
  12. XARELTO [Concomitant]
     Active Substance: RIVAROXABAN
     Dosage: WITH FOOD TO HELP PR
     Dates: start: 20170314
  13. LUPRON DEPOT [Concomitant]
     Active Substance: LEUPROLIDE ACETATE
     Dosage: 1 DOSAGE FORM, Q3MONTHS
     Dates: start: 20150625
  14. FUROSEMIDE. [Concomitant]
     Active Substance: FUROSEMIDE
     Dosage: EACH MORNING
     Dates: start: 20170831
  15. TAMSULOSIN HYDROCHLORIDE. [Concomitant]
     Active Substance: TAMSULOSIN HYDROCHLORIDE
     Dosage: 1 DOSAGE FORM, QD
     Dates: start: 20170629
  16. RANITIDINE. [Suspect]
     Active Substance: RANITIDINE
     Indication: PRODUCT USED FOR UNKNOWN INDICATION
     Dosage: UNK
     Dates: start: 20171127
  17. SOLIFENACIN [Concomitant]
     Active Substance: SOLIFENACIN
     Indication: BLADDER DISORDER
     Dosage: 1 DOSAGE FORM, QD
     Dates: start: 20170726, end: 20171103
  18. ATORVASTATIN [Concomitant]
     Active Substance: ATORVASTATIN
     Dosage: AT NIGHT
     Dates: start: 20170207
  19. CASSIA SENNA [Concomitant]
     Active Substance: HERBALS\SENNOSIDES
     Dosage: AT BEDTIME TO HELP RELIEVE CON
     Dates: start: 20171018, end: 20171115
  20. CALCICHEW D3 [Concomitant]
     Active Substance: CALCIUM\CHOLECALCIFEROL
     Dosage: 2 DOSAGE FORM, QD
     Dates: start: 20170804

REACTIONS (2)
  - Delirium [Unknown]
  - Hallucination [Recovering/Resolving]

NARRATIVE: CASE EVENT DATE: 20171128
